FAERS Safety Report 23346664 (Version 1)
Quarter: 2023Q4

REPORT INFORMATION
  Report Type: Spontaneous
  Country: US (occurrence: None)
  Receive Date: 20231227
  Receipt Date: 20231227
  Transmission Date: 20240109
  Serious: Yes (Hospitalization)
  Sender: FDA-Public Use
  Company Number: None

PATIENT
  Age: 64 Year
  Sex: Male

DRUGS (18)
  1. REBIF REBIDOSE [Suspect]
     Active Substance: INTERFERON BETA-1A
     Indication: Multiple sclerosis
     Route: 058
     Dates: start: 20151009
  2. BACLOFEN TAB [Concomitant]
  3. BUPROPION [Concomitant]
     Active Substance: BUPROPION
  4. CLONAZEPAM [Concomitant]
  5. ESCITALOPRAM [Concomitant]
  6. GABAPENTIN CAP [Concomitant]
  7. HYDROCHLOROT TAB [Concomitant]
  8. HYDROCO/APAP [Concomitant]
  9. MELATONIN TAB [Concomitant]
  10. MODAFINIL [Concomitant]
  11. MYRBETRIQ [Concomitant]
  12. OMEPRAZOLE CAP [Concomitant]
  13. OXYBUTYNIN [Concomitant]
     Active Substance: OXYBUTYNIN
  14. PANTOPRAZOLE TAB [Concomitant]
  15. PROAIR HFA AER [Concomitant]
  16. ROPINIROLE TAB [Concomitant]
  17. TAMSULOSIN CAP [Concomitant]
  18. VALSARTAN [Concomitant]

REACTIONS (3)
  - COVID-19 [None]
  - Multiple sclerosis relapse [None]
  - Fall [None]

NARRATIVE: CASE EVENT DATE: 20231201
